FAERS Safety Report 5374644-7 (Version None)
Quarter: 2007Q2

REPORT INFORMATION
  Report Type: 
  Country: None (occurrence: None)
  Receive Date: 20070625
  Receipt Date: 20070320
  Transmission Date: 20071010
  Serious: Yes (Hospitalization)
  Sender: FDA-Public Use
  Company Number: 07P-163-0358496-00

PATIENT
  Age: 60 Year
  Sex: Female
  Weight: 85.2762 kg

DRUGS (8)
  1. HUMIRA [Suspect]
     Indication: RHEUMATOID ARTHRITIS
     Dosage: 40 MG, 1 IN 1 WK, SUBCUTANEOUS
     Route: 058
     Dates: start: 20041001, end: 20061101
  2. DICYCLOMINE HCL [Concomitant]
  3. IMODIUM [Concomitant]
  4. KADIAN [Concomitant]
  5. VICODIN [Concomitant]
  6. LEXAPRO [Concomitant]
  7. ERGOCALCIFEROL [Concomitant]
  8. CLONAZEPAM [Concomitant]

REACTIONS (3)
  - ABDOMINAL INFECTION [None]
  - DIARRHOEA [None]
  - VOMITING [None]
